FAERS Safety Report 10289359 (Version 4)
Quarter: 2016Q2

REPORT INFORMATION
  Report Type: Spontaneous
  Country: AR (occurrence: AR)
  Receive Date: 20140710
  Receipt Date: 20160527
  Transmission Date: 20160815
  Serious: Yes (Other)
  Sender: FDA-Public Use
  Company Number: AR-AMGEN INC.-ARGSP2014051778

PATIENT
  Age: 60 Year
  Sex: Male

DRUGS (1)
  1. ENBREL [Suspect]
     Active Substance: ETANERCEPT
     Indication: PSORIASIS
     Dosage: 50 MG, WEEKLY
     Route: 065
     Dates: start: 20090703, end: 201404

REACTIONS (8)
  - Tuberculin test positive [Not Recovered/Not Resolved]
  - Diabetes mellitus [Recovered/Resolved]
  - Psoriasis [Recovering/Resolving]
  - Blood glucose abnormal [Not Recovered/Not Resolved]
  - Hypertension [Recovered/Resolved]
  - Condition aggravated [Recovering/Resolving]
  - Depression [Recovering/Resolving]
  - Cough [Recovering/Resolving]

NARRATIVE: CASE EVENT DATE: 2013
